FAERS Safety Report 13150830 (Version 2)
Quarter: 2017Q2

REPORT INFORMATION
  Report Type: Spontaneous
  Country: FR (occurrence: FR)
  Receive Date: 20170125
  Receipt Date: 20170412
  Transmission Date: 20170830
  Serious: Yes (Hospitalization)
  Sender: FDA-Public Use
  Company Number: FR-JNJFOC-20170115859

PATIENT
  Age: 49 Year
  Sex: Male

DRUGS (13)
  1. CAELYX [Suspect]
     Active Substance: DOXORUBICIN HYDROCHLORIDE
     Indication: PRIMARY MEDIASTINAL LARGE B-CELL LYMPHOMA RECURRENT
     Dosage: DAY 01
     Route: 042
     Dates: start: 20170117
  2. ADCETRIS [Suspect]
     Active Substance: BRENTUXIMAB VEDOTIN
     Indication: PRIMARY MEDIASTINAL LARGE B-CELL LYMPHOMA RECURRENT
     Dosage: 2 MG/ML SOLUTION FOR PERFUSION
     Route: 042
     Dates: start: 20161202, end: 20161202
  3. CELLCEPT [Concomitant]
     Active Substance: MYCOPHENOLATE MOFETIL\MYCOPHENOLATE MOFETIL HYDROCHLORIDE
     Route: 048
  4. GEMZAR [Suspect]
     Active Substance: GEMCITABINE HYDROCHLORIDE
     Indication: PRIMARY MEDIASTINAL LARGE B-CELL LYMPHOMA RECURRENT
     Dosage: DAY 01
     Route: 042
     Dates: start: 20170117
  5. VINORELBINE [Suspect]
     Active Substance: VINORELBINE\VINORELBINE TARTRATE
     Indication: CHRONIC LYMPHOCYTIC LEUKAEMIA
     Dosage: 2 MG/ML SOLUTION FOR PERFUSION
     Route: 042
     Dates: start: 20161202, end: 20161202
  6. ALLOPURINOL. [Concomitant]
     Active Substance: ALLOPURINOL
     Route: 048
  7. CAELYX [Suspect]
     Active Substance: DOXORUBICIN HYDROCHLORIDE
     Indication: PRIMARY MEDIASTINAL LARGE B-CELL LYMPHOMA RECURRENT
     Dosage: 2 MG/ML SOLUTION FOR PERFUSION
     Route: 042
     Dates: start: 20161202, end: 20161202
  8. GEMZAR [Suspect]
     Active Substance: GEMCITABINE HYDROCHLORIDE
     Indication: PRIMARY MEDIASTINAL LARGE B-CELL LYMPHOMA RECURRENT
     Dosage: 2 MG/ML SOLUTION FOR PERFUSION
     Route: 042
     Dates: start: 20161202, end: 20161202
  9. VINORELBINE [Suspect]
     Active Substance: VINORELBINE\VINORELBINE TARTRATE
     Indication: CHRONIC LYMPHOCYTIC LEUKAEMIA
     Dosage: DAY 01 OF 2ND CYCLE
     Route: 042
     Dates: start: 20170117
  10. NEORAL [Concomitant]
     Active Substance: CYCLOSPORINE
     Route: 048
  11. TRIATEC [Concomitant]
     Active Substance: RAMIPRIL
     Route: 048
  12. ADCETRIS [Suspect]
     Active Substance: BRENTUXIMAB VEDOTIN
     Indication: PRIMARY MEDIASTINAL LARGE B-CELL LYMPHOMA RECURRENT
     Dosage: ON DAY 01
     Route: 042
     Dates: start: 20170117
  13. FOSAVANCE [Concomitant]
     Active Substance: ALENDRONATE SODIUM\CHOLECALCIFEROL
     Route: 048

REACTIONS (4)
  - Febrile bone marrow aplasia [Recovered/Resolved]
  - Venoocclusive liver disease [Recovering/Resolving]
  - Off label use [Unknown]
  - Colitis [Recovered/Resolved]

NARRATIVE: CASE EVENT DATE: 20161212
